FAERS Safety Report 4461260-4 (Version None)
Quarter: 2004Q3

REPORT INFORMATION
  Report Type: 
  Country: None (occurrence: None)
  Receive Date: 20040928
  Receipt Date: 20040827
  Transmission Date: 20050211
  Serious: Yes (Death)
  Sender: FDA-Public Use
  Company Number: CA-ABBOTT-04P-028-0271866-00

PATIENT
  Sex: Male
  Weight: 56.5 kg

DRUGS (8)
  1. KALETRA [Suspect]
     Indication: ACQUIRED IMMUNODEFICIENCY SYNDROME
     Route: 048
     Dates: start: 20040312, end: 20040325
  2. RISPERDAL [Interacting]
     Indication: AGITATION
     Route: 048
     Dates: start: 20040319, end: 20040322
  3. RISPERDAL [Interacting]
     Route: 048
     Dates: start: 20040322, end: 20040325
  4. ZIDOVUDINE W/LAMIVUDINE [Concomitant]
     Indication: DRUG USE FOR UNKNOWN INDICATION
     Route: 048
     Dates: start: 20040312, end: 20040325
  5. PHENYTOIN SODIUM [Concomitant]
     Indication: DRUG USE FOR UNKNOWN INDICATION
     Route: 048
     Dates: start: 20040312, end: 20040326
  6. BACTRIM [Concomitant]
     Indication: DRUG USE FOR UNKNOWN INDICATION
     Route: 048
     Dates: start: 20040312, end: 20040328
  7. ZITHROMAX [Concomitant]
     Indication: DRUG USE FOR UNKNOWN INDICATION
     Route: 048
     Dates: start: 20040312, end: 20040328
  8. LORAZEPAM [Concomitant]
     Indication: DRUG USE FOR UNKNOWN INDICATION
     Route: 048
     Dates: start: 20040313, end: 20040328

REACTIONS (5)
  - AGITATION [None]
  - DRUG INTERACTION [None]
  - NEUROLEPTIC MALIGNANT SYNDROME [None]
  - PNEUMONIA ASPIRATION [None]
  - SEPSIS [None]
